FAERS Safety Report 16733615 (Version 4)
Quarter: 2021Q2

REPORT INFORMATION
  Report Type: Spontaneous
  Country: DE (occurrence: DE)
  Receive Date: 20190823
  Receipt Date: 20210521
  Transmission Date: 20210716
  Serious: Yes (Other)
  Sender: FDA-Public Use
  Company Number: DE-AUROBINDO-AUR-APL-2019-055434

PATIENT
  Sex: Female
  Weight: 66 kg

DRUGS (11)
  1. KISQALI [Suspect]
     Active Substance: RIBOCICLIB
     Dosage: 600 MILLIGRAM, ONCE A DAY 21 DAYS INTAKE, 7 DAYS PAUSE)
     Route: 048
     Dates: start: 20191004, end: 20191226
  2. KISQALI [Suspect]
     Active Substance: RIBOCICLIB
     Dosage: 400 MILLIGRAM, ONCE A DAY 21 DAYS INTAKE, 7 DAYS PAUSE)
     Route: 048
     Dates: start: 20201002
  3. KISQALI [Suspect]
     Active Substance: RIBOCICLIB
     Dosage: 400 MILLIGRAM, ONCE A DAY((21 DAYS INTAKE, 7 DAYS PAUSE) )
     Route: 065
     Dates: start: 20201218, end: 20210114
  4. KISQALI [Suspect]
     Active Substance: RIBOCICLIB
     Dosage: 400 MILLIGRAM, ONCE A DAY
     Route: 065
     Dates: start: 20210226, end: 20210325
  5. LETROZOLE. [Suspect]
     Active Substance: LETROZOLE
     Indication: BREAST CANCER
     Dosage: 2.5 MILLIGRAM, DAILY
     Route: 048
     Dates: start: 20190704
  6. KISQALI [Suspect]
     Active Substance: RIBOCICLIB
     Dosage: 400 MILLIGRAM, ONCE A DAY
     Route: 065
     Dates: start: 20210402
  7. KISQALI [Suspect]
     Active Substance: RIBOCICLIB
     Indication: BREAST CANCER
     Dosage: 600 MG, (21 DAYS INTAKE, 7 DAYS PAUSE)
     Route: 048
     Dates: start: 20190706, end: 20200927
  8. KISQALI [Suspect]
     Active Substance: RIBOCICLIB
     Dosage: 400 MILLIGRAM, ONCE A DAY 21 DAYS INTAKE, 7 DAYS PAUSE
     Route: 048
     Dates: start: 20200703, end: 20200827
  9. KISQALI [Suspect]
     Active Substance: RIBOCICLIB
     Dosage: 600 MILLIGRAM, ONCE A DAY 21 DAYS INTAKE, 7 DAYS PAUSE
     Route: 048
     Dates: start: 20200103, end: 20200521
  10. KISQALI [Suspect]
     Active Substance: RIBOCICLIB
     Dosage: 600 MILLIGRAM, ONCE A DAY (21 DAYS INTAKE, 7 DAYS PAUSE)
     Route: 048
     Dates: start: 20200529, end: 20200625
  11. KISQALI [Suspect]
     Active Substance: RIBOCICLIB
     Dosage: 400 MILLIGRAM, ONCE A DAY 21 DAYS INTAKE, 7 DAYS PAUSE)
     Dates: start: 20200904, end: 20201002

REACTIONS (7)
  - Arthralgia [Recovered/Resolved]
  - Dyspnoea [Not Recovered/Not Resolved]
  - Dizziness [Recovered/Resolved]
  - Abdominal pain [Not Recovered/Not Resolved]
  - Nausea [Recovered/Resolved]
  - Bone pain [Not Recovered/Not Resolved]
  - Lymphoedema [Not Recovered/Not Resolved]

NARRATIVE: CASE EVENT DATE: 20190710
